FAERS Safety Report 6402907-2 (Version None)
Quarter: 2009Q4

REPORT INFORMATION
  Report Type: 
  Country: None (occurrence: None)
  Receive Date: 20091014
  Receipt Date: 20091014
  Transmission Date: 20100525
  Serious: Yes (Death)
  Sender: FDA-Public Use
  Company Number: None

PATIENT
  Sex: Female
  Weight: 65.5 kg

DRUGS (1)
  1. AVASTIN [Suspect]
     Indication: BREAST CANCER METASTATIC
     Dosage: 600 MG EVERY 21 DAYS I.V.
     Route: 042
     Dates: start: 20090603, end: 20090819

REACTIONS (4)
  - DYSPNOEA EXERTIONAL [None]
  - HYPERKALAEMIA [None]
  - HYPOTENSION [None]
  - RENAL FAILURE ACUTE [None]
